FAERS Safety Report 7921014-0 (Version None)
Quarter: 2011Q4

REPORT INFORMATION
  Report Type: 
  Country: None (occurrence: None)
  Receive Date: 20111117
  Receipt Date: 20111111
  Transmission Date: 20120403
  Serious: Yes (Life-Threatening, Hospitalization)
  Sender: FDA-Public Use
  Company Number: CA-ABBOTT-05P-028-0318775-00

PATIENT
  Sex: Female
  Weight: 60.836 kg

DRUGS (5)
  1. OXAZEPAM [Concomitant]
     Indication: PRODUCT USED FOR UNKNOWN INDICATION
  2. PREVACID [Suspect]
     Indication: GASTRITIS
     Route: 048
     Dates: start: 20050101
  3. HOMEOPATHIC [Concomitant]
     Indication: PRODUCT USED FOR UNKNOWN INDICATION
  4. SYNTHROID [Suspect]
     Indication: PRODUCT USED FOR UNKNOWN INDICATION
     Dates: start: 20030101
  5. SYNTHROID [Concomitant]
     Indication: HYPOTHYROIDISM
     Route: 048

REACTIONS (15)
  - ASTHENIA [None]
  - CONFUSIONAL STATE [None]
  - HYPONATRAEMIA [None]
  - CHOKING [None]
  - BLOOD SODIUM DECREASED [None]
  - BLOOD POTASSIUM DECREASED [None]
  - HYPOMAGNESAEMIA [None]
  - DYSPEPSIA [None]
  - NAUSEA [None]
  - CARDIO-RESPIRATORY ARREST [None]
  - BLOOD MAGNESIUM DECREASED [None]
  - HYPOKALAEMIA [None]
  - GASTROOESOPHAGEAL REFLUX DISEASE [None]
  - COMA [None]
  - HYPOTHYROIDISM [None]
